FAERS Safety Report 11266795 (Version 1)
Quarter: 2015Q3

REPORT INFORMATION
  Report Type: Spontaneous
  Country: US (occurrence: US)
  Receive Date: 20150713
  Receipt Date: 20150713
  Transmission Date: 20151125
  Serious: No
  Sender: FDA-Public Use
  Company Number: US-009507513-1507USA003699

PATIENT
  Sex: Female
  Weight: 165.53 kg

DRUGS (2)
  1. DEPO-PROVERA [Concomitant]
     Active Substance: MEDROXYPROGESTERONE ACETATE
     Indication: CONTRACEPTION
     Dosage: 104 MG, UNK
     Dates: start: 201404
  2. NEXPLANON [Suspect]
     Active Substance: ETONOGESTREL
     Indication: CONTRACEPTION
     Dosage: UNK
     Route: 059
     Dates: start: 20130722

REACTIONS (14)
  - Pain [Unknown]
  - Unintended pregnancy [Unknown]
  - Dyspnoea [Unknown]
  - Fibrin D dimer increased [Unknown]
  - Malaise [Unknown]
  - Medical device complication [Unknown]
  - Abdominal distension [Unknown]
  - Complication of device insertion [Unknown]
  - Pain in extremity [Unknown]
  - Drug ineffective [Unknown]
  - Amenorrhoea [Unknown]
  - Feeling abnormal [Unknown]
  - Peripheral swelling [Unknown]
  - Abdominal pain [Unknown]

NARRATIVE: CASE EVENT DATE: 2013
